FAERS Safety Report 20876036 (Version 1)
Quarter: 2022Q2

REPORT INFORMATION
  Report Type: Spontaneous
  Country: US (occurrence: US)
  Receive Date: 20220526
  Receipt Date: 20220526
  Transmission Date: 20220721
  Serious: No
  Sender: FDA-Public Use
  Company Number: US-drreddys-SPO/USA/22/0150095

PATIENT
  Age: 17 Year
  Sex: Female

DRUGS (2)
  1. ZENATANE [Suspect]
     Active Substance: ISOTRETINOIN
     Indication: Product used for unknown indication
     Dosage: RMA ISSUE DATE: 07 JANUARY 2022 05:44:37 PM, 09 FEBRUARY 2022 12:21:19 PM, 21 MARCH 2022 06:01:44 PM
  2. ZENATANE [Suspect]
     Active Substance: ISOTRETINOIN
     Dosage: RMA ISSUE DATE:06 DECEMBER 2021 12:00:00 AM

REACTIONS (1)
  - Adverse drug reaction [Unknown]
